FAERS Safety Report 9442810 (Version 1)
Quarter: 2013Q3

REPORT INFORMATION
  Report Type: Spontaneous
  Country: US (occurrence: US)
  Receive Date: 20130806
  Receipt Date: 20130806
  Transmission Date: 20140515
  Serious: No
  Sender: FDA-Public Use
  Company Number: US-ABBOTT-12P-163-0998763-00

PATIENT
  Age: 15 Year
  Sex: Female

DRUGS (1)
  1. DEPAKOTE ER [Suspect]
     Indication: MIGRAINE PROPHYLAXIS
     Route: 048

REACTIONS (3)
  - Migraine [Not Recovered/Not Resolved]
  - Food intolerance [Unknown]
  - Inappropriate schedule of drug administration [Not Recovered/Not Resolved]
